FAERS Safety Report 6437328-X (Version None)
Quarter: 2009Q4

REPORT INFORMATION
  Report Type: 
  Country: None (occurrence: None)
  Receive Date: 20091112
  Receipt Date: 20091105
  Transmission Date: 20100525
  Serious: Yes (Death)
  Sender: FDA-Public Use
  Company Number: HU-ELI_LILLY_AND_COMPANY-HU200908001730

PATIENT
  Sex: Male
  Weight: 64 kg

DRUGS (14)
  1. ALIMTA [Suspect]
     Indication: LUNG ADENOCARCINOMA STAGE IV
     Dosage: 900 MG, UNKNOWN
     Route: 065
  2. FOLIC ACID [Concomitant]
  3. VITAMIN B-12 [Concomitant]
     Dates: start: 20090601
  4. EMETRON [Concomitant]
     Dosage: 8 MG, 3/D
     Route: 065
  5. MEDROL [Concomitant]
     Dosage: 32 MG, 2/D
     Route: 065
     Dates: start: 20090701, end: 20090702
  6. MATRIFEN [Concomitant]
     Dosage: 25 UG, EVERY HOUR
     Route: 062
  7. ACECLOFENAC [Concomitant]
     Dosage: 1 D/F, 2/D
     Route: 065
  8. CERUCAL [Concomitant]
     Dosage: 1 D/F, 3/D
     Route: 065
  9. LAEVOLAC [Concomitant]
  10. PECTORALIS                         /00211801/ [Concomitant]
  11. SOLU-MEDROL [Concomitant]
  12. QUAMATEL [Concomitant]
  13. SUPRASTIN [Concomitant]
  14. ANTIHISTAMINES [Concomitant]

REACTIONS (1)
  - PULMONARY OEDEMA [None]
